FAERS Safety Report 14554698 (Version 2)
Quarter: 2018Q4

REPORT INFORMATION
  Report Type: Spontaneous
  Country: GB (occurrence: GB)
  Receive Date: 20180220
  Receipt Date: 20181001
  Transmission Date: 20190204
  Serious: Yes (Hospitalization, Other)
  Sender: FDA-Public Use
  Company Number: GB-PFIZER INC-2018064747

PATIENT
  Age: 92 Year
  Sex: Male

DRUGS (10)
  1. AMLODIPINE BESILATE [Suspect]
     Active Substance: AMLODIPINE BESYLATE
     Dosage: 5 MG, ONCE A DAY, IN THE MORNING
  2. OMEPRAZOLE. [Suspect]
     Active Substance: OMEPRAZOLE
     Dosage: 20 MG, ONCE DAILY
     Dates: start: 20171222
  3. ASCORBIC ACID. [Suspect]
     Active Substance: ASCORBIC ACID
     Dosage: 200 MG, ONCE DAILY
  4. ARANESP [Suspect]
     Active Substance: DARBEPOETIN ALFA
     Dosage: 30 UG, WEEKLY
  5. FOLIC ACID. [Suspect]
     Active Substance: FOLIC ACID
     Dosage: 5 MG, ONCE DAILY IN THE MORNING
  6. ASCORBIC ACID. [Suspect]
     Active Substance: ASCORBIC ACID
     Dosage: 500 MG, ONCE DAILY
  7. FERROUS FUMARATE [Suspect]
     Active Substance: FERROUS FUMARATE
     Dosage: 305 MG, ONCE A DAY, IN THE MORNING
  8. SIMVASTATIN. [Suspect]
     Active Substance: SIMVASTATIN
     Dosage: 40 MG, ONCE DAILY AT NIGHT
  9. CLOPIDOGREL [Suspect]
     Active Substance: CLOPIDOGREL BISULFATE
     Dosage: 75 MG, ONCE DAILY IN THE MORNING
  10. SODIUM BICARBONATE. [Suspect]
     Active Substance: SODIUM BICARBONATE
     Dosage: 3 G, ONCE DAILY

REACTIONS (1)
  - Ischaemic stroke [Not Recovered/Not Resolved]

NARRATIVE: CASE EVENT DATE: 20180119
